FAERS Safety Report 4844882-8 (Version None)
Quarter: 2005Q4

REPORT INFORMATION
  Report Type: 
  Country: None (occurrence: None)
  Receive Date: 20051123
  Receipt Date: 20051111
  Transmission Date: 20060501
  Serious: Yes (Hospitalization)
  Sender: FDA-Public Use
  Company Number: CIP05002573

PATIENT
  Age: 69 Year
  Sex: Male

DRUGS (10)
  1. ACTONEL [Suspect]
     Indication: PROPHYLAXIS
     Dosage: 2.5 MG DAILY, ORAL
     Route: 048
     Dates: start: 20050404, end: 20051101
  2. DECADRON [Concomitant]
  3. LANSOPRAZOLE [Concomitant]
  4. METHYCOBAL (MECOBALAMIN) [Concomitant]
  5. CASODEX [Concomitant]
  6. MARZULENE (SODIUM GUALENATE) [Concomitant]
  7. GLYCERIN (GLYCEROL) [Concomitant]
  8. PURSENNID (SENNOSIDE A+B CALCIUM, SENNOSIDE A+B) [Concomitant]
  9. ROHYPNOL (FLUNITRAZEPAM) [Concomitant]
  10. BUFFERIN [Concomitant]

REACTIONS (9)
  - BONE FISTULA [None]
  - BONE METABOLISM DISORDER [None]
  - BONE SWELLING [None]
  - ORAL INTAKE REDUCED [None]
  - OSTEOMYELITIS [None]
  - OSTEONECROSIS [None]
  - PAIN [None]
  - PAIN IN JAW [None]
  - SWELLING [None]
